FAERS Safety Report 10154594 (Version 1)
Quarter: 2014Q2

REPORT INFORMATION
  Report Type: Spontaneous
  Country: IT (occurrence: None)
  Receive Date: 20140502
  Receipt Date: 20140502
  Transmission Date: 20141212
  Serious: Yes (Death)
  Sender: FDA-Public Use
  Company Number: 2311169

PATIENT
  Age: 50 Year
  Sex: Female

DRUGS (5)
  1. EPIRUBICIN HYDROCHLORIDE [Suspect]
     Indication: BREAST CANCER
     Dosage: CYCLICAL
     Route: 042
     Dates: start: 20140331, end: 20140331
  2. DOCETAXEL [Suspect]
     Indication: BREAST CANCER
     Dosage: CYCLICAL
     Route: 042
     Dates: start: 20140331, end: 20140331
  3. ZARZIO [Suspect]
     Indication: NEUTROPENIA
     Route: 058
     Dates: start: 20140405, end: 20140407
  4. (DOXORUBICIN) [Concomitant]
  5. TRASTUZUMAB [Concomitant]

REACTIONS (3)
  - Functional gastrointestinal disorder [None]
  - Abdominal pain [None]
  - Neutropenia [None]
